FAERS Safety Report 4485777-1 (Version None)
Quarter: 2004Q4

REPORT INFORMATION
  Report Type: 
  Country: None (occurrence: None)
  Receive Date: 20041021
  Receipt Date: 20040928
  Transmission Date: 20050328
  Serious: Yes (Hospitalization, Other)
  Sender: FDA-Public Use
  Company Number: US_980605422

PATIENT
  Age: 53 Year
  Sex: Female
  Weight: 57 kg

DRUGS (7)
  1. HUMULIN U [Suspect]
     Indication: DIABETES MELLITUS
     Dosage: 30 U/2 DAY
     Dates: start: 19960101
  2. HUMALOG [Suspect]
     Indication: DIABETES MELLITUS
     Dosage: 25 U/3 DAY
     Dates: start: 19960101
  3. HUMULIN R [Suspect]
     Indication: DIABETES MELLITUS
     Dosage: 15 U/3 DAY
     Dates: start: 19910101, end: 19960101
  4. HUMULIN N [Suspect]
     Indication: DIABETES MELLITUS
     Dates: start: 19910101, end: 19960101
  5. T4 (LEVOTHYROXINE SODIUM) [Concomitant]
  6. PREMPRO [Concomitant]
  7. VASOTEC [Concomitant]

REACTIONS (6)
  - BLOOD GLUCOSE FLUCTUATION [None]
  - CATARACT [None]
  - DIABETIC KETOACIDOSIS [None]
  - DRUG INEFFECTIVE [None]
  - GASTROENTERITIS [None]
  - OEDEMA [None]
